FAERS Safety Report 9180106 (Version 2)
Quarter: 2013Q3

REPORT INFORMATION
  Report Type: Report from Study
  Country: GB (occurrence: GB)
  Receive Date: 20130321
  Receipt Date: 20130701
  Transmission Date: 20140515
  Serious: Yes (Death)
  Sender: FDA-Public Use
  Company Number: GB-ABBOTT-13P-167-1066273-00

PATIENT
  Age: 82 Year
  Sex: Female
  Weight: 155 kg

DRUGS (4)
  1. HUMIRA [Suspect]
     Indication: RHEUMATOID ARTHRITIS
     Route: 058
     Dates: start: 20050919, end: 20121207
  2. STEROIDS [Concomitant]
     Indication: PRODUCT USED FOR UNKNOWN INDICATION
  3. CEFUROXINE [Concomitant]
     Indication: PRODUCT USED FOR UNKNOWN INDICATION
     Dosage: FREQUENCY:  TDS
     Route: 042
  4. METRONIDAZOLE [Concomitant]
     Indication: PRODUCT USED FOR UNKNOWN INDICATION
     Dosage: FREQUENCY:  TDS

REACTIONS (6)
  - Chronic obstructive pulmonary disease [Fatal]
  - Renal failure chronic [Fatal]
  - Urosepsis [Fatal]
  - Urinary tract infection [Unknown]
  - Kidney infection [Unknown]
  - Lower respiratory tract infection [Unknown]
